FAERS Safety Report 8369379-2 (Version None)
Quarter: 2012Q2

REPORT INFORMATION
  Report Type: 
  Country: None (occurrence: None)
  Receive Date: 20120518
  Receipt Date: 20120509
  Transmission Date: 20120825
  Serious: Yes (Hospitalization)
  Sender: FDA-Public Use
  Company Number: FR-MILLENNIUM PHARMACEUTICALS, INC.-2012-03342

PATIENT

DRUGS (12)
  1. DEXAMETHASONE [Concomitant]
     Indication: MULTIPLE MYELOMA
     Dosage: 40 MG, UNK
     Route: 048
     Dates: start: 20091201, end: 20100801
  2. EZETIMIBE [Concomitant]
  3. ACITRETIN [Concomitant]
     Indication: PSORIASIS
  4. ATORVASTATIN CALCIUM [Concomitant]
  5. ASPIRIN [Concomitant]
  6. VALPROATE SODIUM [Concomitant]
  7. COLECALCIFEROL [Concomitant]
  8. VELCADE [Suspect]
     Indication: MULTIPLE MYELOMA
     Dosage: 1 MG/M2, UNK
     Dates: start: 20091201, end: 20100801
  9. DIGOXIN [Concomitant]
  10. ACETYLCYSTEINE [Concomitant]
  11. THALIDOMIDE [Concomitant]
     Indication: MULTIPLE MYELOMA
     Dosage: 100 MG, UNK
     Route: 048
     Dates: start: 20091201, end: 20100801
  12. ASCORBIC ACID [Concomitant]

REACTIONS (1)
  - LUNG NEOPLASM MALIGNANT [None]
